FAERS Safety Report 11789950 (Version 1)
Quarter: 2015Q4

REPORT INFORMATION
  Report Type: Spontaneous
  Country: US (occurrence: US)
  Receive Date: 20151201
  Receipt Date: 20151201
  Transmission Date: 20160305
  Serious: Yes (Hospitalization, Other)
  Sender: FDA-Public Use
  Company Number: US-PFIZER INC-2015401259

PATIENT
  Age: 67 Year
  Sex: Female
  Weight: 44.91 kg

DRUGS (2)
  1. SUTENT [Suspect]
     Active Substance: SUNITINIB MALATE
     Dosage: ONE 50 MG CAPSULE, CYCLIC FOR TWO WEEKS ON AND ONE WEEK OFF
     Dates: start: 2012
  2. SUTENT [Suspect]
     Active Substance: SUNITINIB MALATE
     Indication: RENAL CANCER
     Dosage: UNK
     Dates: start: 2011

REACTIONS (3)
  - Arterial occlusive disease [Unknown]
  - Fluid retention [Unknown]
  - Blood cholesterol increased [Unknown]

NARRATIVE: CASE EVENT DATE: 2015
